FAERS Safety Report 16609230 (Version 2)
Quarter: 2020Q2

REPORT INFORMATION
  Report Type: Spontaneous
  Country: US (occurrence: US)
  Receive Date: 20190722
  Receipt Date: 20200430
  Transmission Date: 20200713
  Serious: Yes (Life-Threatening, Hospitalization, Disabling, Other)
  Sender: FDA-Public Use
  Company Number: US-GILEAD-2019-0418764

PATIENT
  Age: 54 Year
  Sex: Male
  Weight: 75.28 kg

DRUGS (1)
  1. BIKTARVY [Suspect]
     Active Substance: BICTEGRAVIR SODIUM\EMTRICITABINE\TENOFOVIR ALAFENAMIDE FUMARATE
     Indication: HIV INFECTION
     Dosage: 1 DOSAGE FORM
     Route: 048
     Dates: start: 20190222, end: 20190522

REACTIONS (4)
  - Arthralgia [Recovered/Resolved]
  - Autoimmune disorder [Recovered/Resolved]
  - Angioedema [Not Recovered/Not Resolved]
  - Pulmonary hypertension [Not Recovered/Not Resolved]

NARRATIVE: CASE EVENT DATE: 20190401
